FAERS Safety Report 22333285 (Version 1)
Quarter: 2023Q2

REPORT INFORMATION
  Report Type: Spontaneous
  Country: US (occurrence: US)
  Receive Date: 20230517
  Receipt Date: 20230517
  Transmission Date: 20230721
  Serious: Yes (Other)
  Sender: FDA-Public Use
  Company Number: US-BAYER-2023A066168

PATIENT
  Age: 68 Year
  Sex: Male

DRUGS (2)
  1. ASPIRIN [Suspect]
     Active Substance: ASPIRIN
     Dosage: 81 MG, QD
  2. ROSUVASTATIN [Concomitant]
     Active Substance: ROSUVASTATIN
     Dosage: 20 MG, QD

REACTIONS (1)
  - Haemorrhage [None]
